FAERS Safety Report 5831706 (Version 3)
Quarter: 2012Q4

REPORT INFORMATION
  Report Type: 
  Country: US (occurrence: US)
  Receive Date: 20050706
  Receipt Date: 20121121
  Transmission Date: 20130627
  Serious: Yes (Other)
  Sender: FDA-Public Use
  Company Number: US-JNJFOC-20050700223

PATIENT
  Sex: Female
  Weight: 72.58 kg

DRUGS (10)
  1. MOTRIN [Suspect]
     Indication: TENDONITIS
     Dosage: 600 mg and 800 mg prn
     Route: 048
     Dates: start: 200401, end: 200405
  2. IBUPROFEN [Suspect]
     Indication: TENDONITIS
     Dosage: 600 and 800 mg prn
     Route: 048
     Dates: start: 200401, end: 200405
  3. XANAX [Suspect]
     Indication: DEPRESSION
     Dosage: as needed, then on a regular basis
     Route: 048
     Dates: end: 20040512
  4. XANAX [Suspect]
     Indication: ANXIETY
     Dosage: as needed, then on a regular basis
     Route: 048
     Dates: end: 20040512
  5. BEXTRA [Suspect]
     Indication: TENDONITIS
     Route: 048
     Dates: start: 20040223, end: 200404
  6. BEXTRA [Suspect]
     Indication: TENDONITIS
     Route: 048
     Dates: start: 20040223, end: 200404
  7. CELEBREX [Suspect]
     Indication: TENDONITIS
     Route: 048
     Dates: start: 20040419, end: 200409
  8. CELEXA [Concomitant]
  9. HYDROCHLOROTHIAZIDE [Concomitant]
  10. TYLENOL #3 [Concomitant]

REACTIONS (32)
  - Convulsion [Recovered/Resolved]
  - Loss of consciousness [Recovered/Resolved]
  - Aggression [Unknown]
  - Hallucination, auditory [Recovered/Resolved]
  - Chest pain [Recovered/Resolved]
  - Paranoia [Recovered/Resolved]
  - Hypoglycaemia [Recovered/Resolved]
  - Weight decreased [Recovered/Resolved]
  - Disorientation [Recovered/Resolved]
  - Fatigue [Recovered/Resolved]
  - Dysgeusia [Recovered/Resolved]
  - Cold sweat [Recovered/Resolved]
  - Clumsiness [Recovered/Resolved]
  - Dysphemia [Recovered/Resolved]
  - Fall [Recovered/Resolved]
  - Migraine [Recovered/Resolved]
  - Retching [Recovered/Resolved]
  - Feeding disorder [Recovered/Resolved]
  - Tinnitus [Recovered/Resolved]
  - Dizziness [Recovered/Resolved]
  - Vomiting [Recovered/Resolved]
  - Nervousness [Recovered/Resolved]
  - Diarrhoea [Recovered/Resolved]
  - Accident at work [None]
  - Tendonitis [None]
  - Agitation [None]
  - Anger [None]
  - Nausea [None]
  - Aphagia [None]
  - Fall [None]
  - Post-traumatic stress disorder [None]
  - Drug withdrawal syndrome [None]
